FAERS Safety Report 17815777 (Version 1)
Quarter: 2020Q2

REPORT INFORMATION
  Report Type: Spontaneous
  Country: US (occurrence: US)
  Receive Date: 20200522
  Receipt Date: 20200522
  Transmission Date: 20200714
  Serious: Yes (Hospitalization)
  Sender: FDA-Public Use
  Company Number: None

PATIENT
  Sex: Female

DRUGS (4)
  1. DALFAMPRIDINE. [Suspect]
     Active Substance: DALFAMPRIDINE
     Indication: MULTIPLE SCLEROSIS
     Route: 048
     Dates: start: 20150908
  2. KRILL OIL, IRON, LEVOTHYROXINE, LEXAPRO, OXYBUTYNIN, BACLOFEN [Concomitant]
  3. TERBINAFINE, MULTI-VITAMIN, VITAMIN C, CALCIUM, LUTEIN [Concomitant]
  4. GLATIRAMER [Suspect]
     Active Substance: GLATIRAMER
     Indication: MULTIPLE SCLEROSIS
     Dosage: ?          OTHER FREQUENCY:THREE TIMES A WEEK;?
     Route: 058
     Dates: start: 20150909

REACTIONS (1)
  - Urinary tract infection [None]
